FAERS Safety Report 11703948 (Version 4)
Quarter: 2016Q1

REPORT INFORMATION
  Report Type: Spontaneous
  Country: US (occurrence: None)
  Receive Date: 20151106
  Receipt Date: 20160216
  Transmission Date: 20160525
  Serious: Yes (Hospitalization, Other)
  Sender: FDA-Public Use
  Company Number: US-MDT-ADR-2015-02091

PATIENT
  Age: 25 Year
  Sex: Male

DRUGS (1)
  1. LIORESAL [Suspect]
     Active Substance: BACLOFEN
     Dosage: 403.2MCG/DAY

REACTIONS (14)
  - Candida test positive [None]
  - Post lumbar puncture syndrome [None]
  - Blood pressure increased [None]
  - Medical device site swelling [None]
  - Muscle spasms [None]
  - Cerebrospinal fluid leakage [None]
  - Hypotonia [None]
  - Drug withdrawal syndrome [None]
  - Confusional state [None]
  - Constipation [None]
  - Medical device site discharge [None]
  - Pruritus [None]
  - Urinary tract infection [None]
  - Implant site extravasation [None]
